FAERS Safety Report 4498237-9 (Version None)
Quarter: 2004Q3

REPORT INFORMATION
  Report Type: 
  Country: None (occurrence: None)
  Receive Date: 20040927
  Receipt Date: 20040608
  Transmission Date: 20050211
  Serious: No
  Sender: FDA-Public Use
  Company Number: USA040669574

PATIENT
  Sex: Female

DRUGS (4)
  1. STRATTERA [Suspect]
     Indication: ATTENTION DEFICIT/HYPERACTIVITY DISORDER
     Dosage: 40 MG DAY
     Dates: start: 20040607
  2. TIAZAC [Concomitant]
  3. NAPROSYN [Concomitant]
  4. SYNTHROID [Concomitant]

REACTIONS (6)
  - BLOOD PRESSURE INCREASED [None]
  - COLD SWEAT [None]
  - EUPHORIC MOOD [None]
  - FORMICATION [None]
  - INSOMNIA [None]
  - NERVOUSNESS [None]
